FAERS Safety Report 6575118-8 (Version None)
Quarter: 2010Q1

REPORT INFORMATION
  Report Type: 
  Country: None (occurrence: None)
  Receive Date: 20100201
  Receipt Date: 20100119
  Transmission Date: 20100710
  Serious: Yes (Hospitalization)
  Sender: FDA-Public Use
  Company Number: VISP-NO-1001S-0025

PATIENT
  Age: 67 Year
  Sex: Male

DRUGS (1)
  1. VISIPAQUE [Suspect]
     Indication: DISEASE PROGRESSION
     Dosage: SINGLE DOSE, I.V.
     Route: 042
     Dates: start: 20091215, end: 20091215

REACTIONS (1)
  - ACUTE GENERALISED EXANTHEMATOUS PUSTULOSIS [None]
